FAERS Safety Report 15851513 (Version 1)
Quarter: 2019Q1

REPORT INFORMATION
  Report Type: Spontaneous
  Country: GB (occurrence: GB)
  Receive Date: 20190122
  Receipt Date: 20190122
  Transmission Date: 20190417
  Serious: Yes (Other)
  Sender: FDA-Public Use
  Company Number: GB-AUROBINDO-AUR-APL-2019-002084

PATIENT
  Age: 50 Year
  Sex: Female

DRUGS (1)
  1. BUPIVACAINE HYDROCHLORIDE SOLUTION FOR INJECTION [Suspect]
     Active Substance: BUPIVACAINE HYDROCHLORIDE
     Indication: BURSITIS
     Dosage: 20 MILLILITER (ADMINISTER ONCE)
     Route: 065
     Dates: start: 20180511

REACTIONS (20)
  - Dry skin [Unknown]
  - Paraesthesia [Unknown]
  - Eye pain [Not Recovered/Not Resolved]
  - Dry mouth [Unknown]
  - Weight decreased [Unknown]
  - Blindness [Not Recovered/Not Resolved]
  - Depression [Unknown]
  - Feeling abnormal [Unknown]
  - Bedridden [Recovered/Resolved]
  - Spondylitis [Unknown]
  - Joint noise [Unknown]
  - Flushing [Recovered/Resolved]
  - Eye irritation [Not Recovered/Not Resolved]
  - Panic attack [Not Recovered/Not Resolved]
  - Vomiting [Unknown]
  - Decreased appetite [Unknown]
  - Dry eye [Unknown]
  - Dysgeusia [Unknown]
  - Malaise [Not Recovered/Not Resolved]
  - Cataract [Unknown]
